FAERS Safety Report 9983272 (Version 1)
Quarter: 2014Q1

REPORT INFORMATION
  Report Type: Spontaneous
  Country: US (occurrence: US)
  Receive Date: 20140307
  Receipt Date: 20140307
  Transmission Date: 20141002
  Serious: Yes (Other)
  Sender: FDA-Public Use
  Company Number: US-SA-2014SA028748

PATIENT
  Sex: 0

DRUGS (1)
  1. NASACORT ALLERGY [Suspect]
     Dosage: DOSE: 1 SPRAY PER NOSTRIL
     Route: 065

REACTIONS (2)
  - Haemoptysis [Unknown]
  - Epistaxis [Unknown]
